FAERS Safety Report 15179134 (Version 1)
Quarter: 2018Q3

REPORT INFORMATION
  Report Type: Spontaneous
  Country: CA (occurrence: CA)
  Receive Date: 20180723
  Receipt Date: 20180723
  Transmission Date: 20181010
  Serious: No
  Sender: FDA-Public Use
  Company Number: CA-TEVA-2018-CA-925622

PATIENT
  Age: 40 Year
  Sex: Female

DRUGS (2)
  1. GABAPENTIN. [Suspect]
     Active Substance: GABAPENTIN
     Route: 048
  2. CYCLOBENZAPRINE. [Suspect]
     Active Substance: CYCLOBENZAPRINE
     Route: 048

REACTIONS (4)
  - Headache [Unknown]
  - Anxiety [Unknown]
  - Feeling abnormal [Unknown]
  - Somnolence [Unknown]
